FAERS Safety Report 6973359-9 (Version None)
Quarter: 2010Q3

REPORT INFORMATION
  Report Type: 
  Country: None (occurrence: None)
  Receive Date: 20100909
  Receipt Date: 20100830
  Transmission Date: 20110219
  Serious: No
  Sender: FDA-Public Use
  Company Number: US-B.I. PHARMACEUTICALS,INC./RIDGEFIELD-2010-BP-09338BP

PATIENT
  Sex: Female

DRUGS (3)
  1. SPIRIVA [Suspect]
     Indication: CHRONIC OBSTRUCTIVE PULMONARY DISEASE
     Dosage: 18 MCG
     Route: 055
     Dates: start: 20100501
  2. SPIRIVA [Suspect]
     Indication: DYSPNOEA
  3. TYLENOL (CAPLET) [Concomitant]
     Indication: ARTHRITIS

REACTIONS (3)
  - EAR PAIN [None]
  - FOREIGN BODY [None]
  - SENSATION OF FOREIGN BODY [None]
